FAERS Safety Report 9323125 (Version 2)
Quarter: 2013Q2

REPORT INFORMATION
  Report Type: Spontaneous
  Country: US (occurrence: US)
  Receive Date: 20130603
  Receipt Date: 20130628
  Transmission Date: 20140414
  Serious: Yes (Hospitalization, Other)
  Sender: FDA-Public Use
  Company Number: US-AMGEN-USASP2013038700

PATIENT
  Age: 85 Year
  Sex: Female

DRUGS (13)
  1. PROLIA [Suspect]
     Indication: OSTEOPOROSIS POSTMENOPAUSAL
     Dosage: 60 MG, Q6MO
     Route: 058
     Dates: start: 20130521
  2. METHYLPREDNISOLONE [Concomitant]
     Indication: RHEUMATOID ARTHRITIS
     Dosage: 2 MG, BID
     Route: 048
     Dates: start: 2011
  3. QVAR [Concomitant]
     Indication: ASTHMA
     Dosage: 80 MUG, BID
     Dates: start: 2011
  4. IPRATROPIUM [Concomitant]
     Indication: ASTHMA
     Dosage: 0.02 %, TID
  5. XOPENEX [Concomitant]
     Indication: ASTHMA
     Dosage: UNK UNK, TID
     Dates: start: 2011
  6. LORATADINE [Concomitant]
     Indication: BRONCHIECTASIS
     Dosage: 10 MG, QD
     Route: 048
  7. ATORVASTATIN [Concomitant]
     Indication: BLOOD CHOLESTEROL INCREASED
     Dosage: 40 MG, QD
     Route: 048
  8. CALCIUM AND VIT D [Concomitant]
     Indication: OSTEOPOROSIS
     Dosage: 600/500
  9. IRON [Concomitant]
     Indication: IRON DEFICIENCY ANAEMIA
     Dosage: 160 MG, QD
     Route: 048
     Dates: start: 20120410
  10. DIOVAN [Concomitant]
     Indication: HYPERTENSION
     Dosage: 160 MG, QD
     Route: 048
     Dates: start: 20120406
  11. FUROSEMIDE [Concomitant]
     Indication: CARDIAC FAILURE CONGESTIVE
     Dosage: 20 MG, QD
     Route: 048
     Dates: start: 20120502
  12. NEXIUM                             /01479302/ [Concomitant]
     Indication: GASTROOESOPHAGEAL REFLUX DISEASE
     Dosage: 40 MG, QD
     Route: 048
     Dates: start: 20110603
  13. VITAMIN C                          /00008001/ [Concomitant]
     Indication: IRON DEFICIENCY ANAEMIA
     Dosage: 1000 MG, QD
     Route: 048
     Dates: start: 20120410

REACTIONS (1)
  - Cerebrovascular accident [Recovering/Resolving]
